FAERS Safety Report 10794311 (Version 1)
Quarter: 2015Q1

REPORT INFORMATION
  Report Type: Spontaneous
  Country: US (occurrence: US)
  Receive Date: 20150213
  Receipt Date: 20150213
  Transmission Date: 20150721
  Serious: Yes (Hospitalization)
  Sender: FDA-Public Use
  Company Number: US-UNITED THERAPEUTICS-UNT-2015-000520

PATIENT
  Age: 71 Year
  Sex: Female
  Weight: 76.19 kg

DRUGS (2)
  1. TYVASO [Suspect]
     Active Substance: TREPROSTINIL
     Dosage: 18-54 ?G, QID
     Dates: start: 20141219
  2. TYVASO [Suspect]
     Active Substance: TREPROSTINIL
     Indication: PULMONARY ARTERIAL HYPERTENSION
     Dosage: 18-54 ?G, QID
     Dates: start: 20141219

REACTIONS (4)
  - Asthenia [Unknown]
  - Fall [Unknown]
  - Drug dose omission [Unknown]
  - Syncope [Unknown]

NARRATIVE: CASE EVENT DATE: 20150111
